FAERS Safety Report 16406398 (Version 1)
Quarter: 2019Q2

REPORT INFORMATION
  Report Type: Spontaneous
  Country: IT (occurrence: IT)
  Receive Date: 20190607
  Receipt Date: 20190607
  Transmission Date: 20190711
  Serious: Yes (Other)
  Sender: FDA-Public Use
  Company Number: IT-ELI_LILLY_AND_COMPANY-IT201905012651

PATIENT
  Age: 78 Year
  Sex: Female

DRUGS (1)
  1. TALTZ [Suspect]
     Active Substance: IXEKIZUMAB
     Indication: PSORIASIS
     Dosage: 80 MG, CYCLICAL
     Route: 058
     Dates: start: 20190121, end: 20190508

REACTIONS (3)
  - Dysentery [Unknown]
  - Angioedema [Unknown]
  - Vertigo [Unknown]

NARRATIVE: CASE EVENT DATE: 20190508
